FAERS Safety Report 6022272-2 (Version None)
Quarter: 2008Q4

REPORT INFORMATION
  Report Type: 
  Country: None (occurrence: None)
  Receive Date: 20081230
  Receipt Date: 20081218
  Transmission Date: 20090506
  Serious: Yes (Hospitalization)
  Sender: FDA-Public Use
  Company Number: US-JNJFOC-20081205576

PATIENT
  Age: 63 Year
  Sex: Female
  Weight: 78.02 kg

DRUGS (6)
  1. EXTRA STRENGTH TYLENOL [Suspect]
     Route: 048
  2. EXTRA STRENGTH TYLENOL [Suspect]
     Indication: HEADACHE
     Route: 048
  3. UNSPECIFIED MEDICATION [Concomitant]
     Indication: NERVOUS SYSTEM DISORDER
  4. DIOVAN [Concomitant]
     Indication: HYPERTENSION
  5. UNSPECIFIED MEDICATION [Concomitant]
     Indication: HYPOTHYROIDISM
  6. UNSPECIFIED MEDICATION [Concomitant]
     Indication: DEPRESSION

REACTIONS (4)
  - ABDOMINAL PAIN UPPER [None]
  - HEADACHE [None]
  - NAUSEA [None]
  - PRODUCT QUALITY ISSUE [None]
